FAERS Safety Report 7678309-8 (Version None)
Quarter: 2011Q3

REPORT INFORMATION
  Report Type: 
  Country: None (occurrence: None)
  Receive Date: 20110811
  Receipt Date: 20110803
  Transmission Date: 20111222
  Serious: Yes (Hospitalization)
  Sender: FDA-Public Use
  Company Number: TN-PERRIGO-11TN006286

PATIENT
  Age: 45 Year
  Sex: Female

DRUGS (3)
  1. NAPROXEN [Suspect]
     Dosage: 550 MG, BID
     Route: 048
     Dates: start: 20100901, end: 20101020
  2. NOMEGESTROL [Suspect]
     Indication: CONTRACEPTION
     Dosage: UNK
     Route: 065
     Dates: start: 20100501, end: 20100907
  3. NAPROXEN [Suspect]
     Indication: ARTHRALGIA
     Dosage: 550 MG, QD, PRN
     Route: 048
     Dates: start: 20000101, end: 20100901

REACTIONS (4)
  - LEUKOCYTOCLASTIC VASCULITIS [None]
  - ECCHYMOSIS [None]
  - ARTHRALGIA [None]
  - PETECHIAE [None]
